FAERS Safety Report 11315797 (Version 1)
Quarter: 2015Q3

REPORT INFORMATION
  Report Type: Spontaneous
  Country: US (occurrence: None)
  Receive Date: 20150724
  Receipt Date: 20150724
  Transmission Date: 20151125
  Serious: No
  Sender: FDA-Public Use
  Company Number: None

PATIENT
  Age: 66 Year
  Sex: Female

DRUGS (9)
  1. LISINOPRIL. [Concomitant]
     Active Substance: LISINOPRIL
  2. LORAZAPAM [Concomitant]
     Active Substance: LORAZEPAM
  3. CAPECITABINE. [Concomitant]
     Active Substance: CAPECITABINE
  4. ONDANSETRON [Concomitant]
     Active Substance: ONDANSETRON
  5. PROCHLORPERAZINE. [Concomitant]
     Active Substance: PROCHLORPERAZINE
  6. TEMOZOLOMIDE. [Suspect]
     Active Substance: TEMOZOLOMIDE
     Indication: NEOPLASM MALIGNANT
     Route: 048
     Dates: start: 20150206, end: 20150313
  7. ATORVASTATIN [Concomitant]
     Active Substance: ATORVASTATIN
  8. OCTREOTIDE. [Concomitant]
     Active Substance: OCTREOTIDE
  9. TRAMADOL. [Concomitant]
     Active Substance: TRAMADOL

REACTIONS (6)
  - Rash [None]
  - Bone marrow failure [None]
  - Incorrect dose administered [None]
  - Neutropenia [None]
  - Thrombocytopenia [None]
  - Nausea [None]

NARRATIVE: CASE EVENT DATE: 20150313
